FAERS Safety Report 14411973 (Version 1)
Quarter: 2018Q1

REPORT INFORMATION
  Report Type: Spontaneous
  Country: KR (occurrence: KR)
  Receive Date: 20180119
  Receipt Date: 20180119
  Transmission Date: 20180509
  Serious: Yes (Hospitalization, Other)
  Sender: FDA-Public Use
  Company Number: KR-MYLANLABS-2018M1003981

PATIENT
  Age: 7 Decade
  Sex: Male

DRUGS (4)
  1. DOXORUBICIN [Suspect]
     Active Substance: DOXORUBICIN
     Indication: HEPATOCELLULAR CARCINOMA
     Dosage: 50 MG INFUSED OVER 1 ML PER MIN AS PART OF TACE WITH DC BEADS
     Route: 013
  2. IMERON [Suspect]
     Active Substance: IOMEPROL
     Indication: HEPATOCELLULAR CARCINOMA
     Dosage: UNK
     Route: 013
  3. ADRIAMYCIN [Suspect]
     Active Substance: DOXORUBICIN HYDROCHLORIDE
     Indication: HEPATOCELLULAR CARCINOMA
     Dosage: 50MG- 19 CYCLES ON DEMAND TACL
     Route: 013
  4. LIPIODOL [Suspect]
     Active Substance: ETHIODIZED OIL
     Indication: HEPATOCELLULAR CARCINOMA
     Dosage: UNK
     Route: 013

REACTIONS (7)
  - Pancreatitis necrotising [Recovered/Resolved]
  - Duodenal ulcer [Recovered/Resolved]
  - Hepatic infarction [Recovered/Resolved]
  - Gastric ulcer [Recovered/Resolved]
  - Bile duct stenosis [Recovered/Resolved]
  - Splenic infarction [Recovered/Resolved]
  - Hepatic artery stenosis [Unknown]
